FAERS Safety Report 4518725-6 (Version None)
Quarter: 2004Q4

REPORT INFORMATION
  Report Type: 
  Country: None (occurrence: None)
  Receive Date: 20041201
  Receipt Date: 20041115
  Transmission Date: 20050328
  Serious: Yes (Hospitalization, Other)
  Sender: FDA-Public Use
  Company Number: US014114

PATIENT
  Sex: Female

DRUGS (1)
  1. ACTIQ [Suspect]
     Dosage: 400 UG  Q4HR BUCCAL
     Route: 002

REACTIONS (3)
  - COMA [None]
  - DRUG TOLERANCE [None]
  - NAUSEA [None]
